FAERS Safety Report 6056476-X (Version None)
Quarter: 2009Q1

REPORT INFORMATION
  Report Type: 
  Country: None (occurrence: None)
  Receive Date: 20090129
  Receipt Date: 20090122
  Transmission Date: 20090719
  Serious: Yes (Other)
  Sender: FDA-Public Use
  Company Number: PHEH2008US08710

PATIENT
  Sex: Female

DRUGS (4)
  1. TEKTURNA [Suspect]
     Indication: HYPERTENSION
     Dosage: 300 MG, QD
     Route: 048
  2. HYDROCHLOROTHIAZIDE [Suspect]
     Dosage: UNK, UNK
  3. ACE INHIBITOR NOS [Suspect]
     Dosage: UNK, UNK
  4. BETA BLOCKING AGENTS [Suspect]
     Dosage: UNK, UNK

REACTIONS (2)
  - BLOOD CREATININE INCREASED [None]
  - HYPERKALAEMIA [None]
